FAERS Safety Report 5363919-3 (Version None)
Quarter: 2007Q2

REPORT INFORMATION
  Report Type: 
  Country: None (occurrence: None)
  Receive Date: 20070530
  Receipt Date: 20070103
  Transmission Date: 20071010
  Serious: No
  Sender: FDA-Public Use
  Company Number: 2007PV027764

PATIENT
  Sex: Female

DRUGS (6)
  1. BYETTA [Suspect]
     Indication: DIABETES MELLITUS
     Dosage: 10 + 5 MCG; BID; SC
     Route: 058
     Dates: start: 20061001, end: 20061201
  2. BYETTA [Suspect]
     Indication: DIABETES MELLITUS
     Dosage: 10 + 5 MCG; BID; SC
     Route: 058
     Dates: start: 20061201
  3. LASIX [Suspect]
     Indication: OEDEMA PERIPHERAL
     Dosage: 40 MG; QD; PO
     Route: 048
     Dates: start: 20061201
  4. ARTHROTEC [Concomitant]
  5. LASIX [Concomitant]
  6. METHOLAZONE [Concomitant]

REACTIONS (3)
  - CONDITION AGGRAVATED [None]
  - CONSTIPATION [None]
  - OEDEMA PERIPHERAL [None]
